FAERS Safety Report 5820056-9 (Version None)
Quarter: 2008Q3

REPORT INFORMATION
  Report Type: 
  Country: None (occurrence: None)
  Receive Date: 20080724
  Receipt Date: 20080715
  Transmission Date: 20090109
  Serious: Yes (Life-Threatening, Hospitalization)
  Sender: FDA-Public Use
  Company Number: AT-JNJFOC-20080703390

PATIENT
  Age: 34 Year
  Sex: Male

DRUGS (2)
  1. INVEGA [Suspect]
     Indication: SCHIZOPHRENIA
     Route: 048
  2. QUETIAPIN [Concomitant]
     Route: 048

REACTIONS (5)
  - ACCIDENT [None]
  - CONDITION AGGRAVATED [None]
  - FALL [None]
  - PSYCHOTIC DISORDER [None]
  - SUICIDE ATTEMPT [None]
